FAERS Safety Report 4462239-9 (Version None)
Quarter: 2004Q3

REPORT INFORMATION
  Report Type: 
  Country: None (occurrence: None)
  Receive Date: 20040924
  Receipt Date: 20040915
  Transmission Date: 20050211
  Serious: Yes (Hospitalization)
  Sender: FDA-Public Use
  Company Number: 2004051197

PATIENT
  Age: 80 Year
  Sex: Male

DRUGS (12)
  1. NEURONTIN [Suspect]
     Indication: PAIN IN EXTREMITY
     Dosage: 3600 MG (3 IN 1 D), ORAL
     Route: 048
     Dates: start: 20020101
  2. LISINOPRIL [Concomitant]
  3. ATORVASTATIN (ATORVASTATIN) [Concomitant]
  4. FENOFIBRATE [Concomitant]
  5. RANITIDINE HYDROCHLORIDE [Concomitant]
  6. HYDROMORPHONE HCL [Concomitant]
  7. MULTIVITAMINS (ASCORBIC ACID, ERGOCALCIFEROL, FOLIC ACID, NICOTINAMIDE [Concomitant]
  8. METOPROLOL TARTRATE [Concomitant]
  9. ASPIRIN [Concomitant]
  10. SERTRALINE HCL [Concomitant]
  11. AMLODIPINE BESYLATE [Concomitant]
  12. HYDROCHLOROTHIAZIDE [Concomitant]

REACTIONS (2)
  - CARDIAC DISORDER [None]
  - CREATININE RENAL CLEARANCE DECREASED [None]
